FAERS Safety Report 15636077 (Version 2)
Quarter: 2019Q1

REPORT INFORMATION
  Report Type: Spontaneous
  Country: US (occurrence: US)
  Receive Date: 20181120
  Receipt Date: 20190201
  Transmission Date: 20190417
  Serious: No
  Sender: FDA-Public Use
  Company Number: US-JNJFOC-20181044118

PATIENT
  Sex: Male
  Weight: 104.33 kg

DRUGS (2)
  1. MENS ROGAINE [Suspect]
     Active Substance: MINOXIDIL
     Route: 061
  2. MENS ROGAINE [Suspect]
     Active Substance: MINOXIDIL
     Indication: ALOPECIA
     Dosage: 1 DROPPER NIGHTLY
     Route: 061
     Dates: start: 2018, end: 2018

REACTIONS (4)
  - Pruritus [Recovered/Resolved]
  - Off label use [Unknown]
  - Reaction to excipient [Recovered/Resolved]
  - Inappropriate schedule of product administration [Unknown]

NARRATIVE: CASE EVENT DATE: 2018
